FAERS Safety Report 20531029 (Version 1)
Quarter: 2022Q1

REPORT INFORMATION
  Report Type: Spontaneous
  Country: US (occurrence: None)
  Receive Date: 20220228
  Receipt Date: 20220228
  Transmission Date: 20220424
  Serious: Yes (Death)
  Sender: FDA-Public Use
  Company Number: None

PATIENT
  Age: 78 Year
  Sex: Male

DRUGS (1)
  1. SILDENAFIL [Suspect]
     Active Substance: SILDENAFIL
     Indication: Essential hypertension
     Dosage: TAKE 1 TABLET BY MOUTH THREE TIMES A DAY.
     Route: 048
     Dates: start: 20180123, end: 20220224

REACTIONS (1)
  - Death [None]

NARRATIVE: CASE EVENT DATE: 20220224
